FAERS Safety Report 6115433-5 (Version None)
Quarter: 2009Q1

REPORT INFORMATION
  Report Type: 
  Country: None (occurrence: None)
  Receive Date: 20090313
  Receipt Date: 20090310
  Transmission Date: 20090719
  Serious: Yes (Hospitalization)
  Sender: FDA-Public Use
  Company Number: DE-AVENTIS-200910682DE

PATIENT
  Age: 79 Year
  Sex: Female
  Weight: 80 kg

DRUGS (5)
  1. FUROSEMIDE [Suspect]
     Route: 048
     Dates: start: 20080916, end: 20080916
  2. LISINOPRIL [Concomitant]
     Route: 048
     Dates: start: 20020101
  3. RESTEX [Concomitant]
     Route: 048
  4. SIMVASTATIN [Concomitant]
     Route: 048
     Dates: start: 20020101
  5. TILIDIN [Concomitant]
     Route: 048
     Dates: start: 20080101

REACTIONS (2)
  - CIRCULATORY COLLAPSE [None]
  - NAUSEA [None]
